FAERS Safety Report 6049954-0 (Version None)
Quarter: 2009Q1

REPORT INFORMATION
  Report Type: 
  Country: None (occurrence: None)
  Receive Date: 20090121
  Receipt Date: 20090106
  Transmission Date: 20090719
  Serious: Yes (Death)
  Sender: FDA-Public Use
  Company Number: PAR_02546_2009

PATIENT
  Age: 19 Year
  Sex: Male

DRUGS (4)
  1. FLUOXETINE HCL [Suspect]
     Indication: DRUG USE FOR UNKNOWN INDICATION
     Dosage: DF, ORAL
     Route: 048
  2. QUETIAPINE FUMARATE [Suspect]
     Indication: DRUG USE FOR UNKNOWN INDICATION
     Dosage: DF, ORAL
     Route: 048
  3. SERTRALINE [Suspect]
     Indication: DRUG USE FOR UNKNOWN INDICATION
     Dosage: DF, ORAL
     Route: 048
  4. DEXTROMETHORPHAN HYDROBROMIDE [Suspect]
     Indication: DRUG USE FOR UNKNOWN INDICATION
     Dosage: DF, ORAL
     Route: 048

REACTIONS (1)
  - DEATH [None]
